FAERS Safety Report 4679154-8 (Version None)
Quarter: 2005Q2

REPORT INFORMATION
  Report Type: 
  Country: None (occurrence: None)
  Receive Date: 20050527
  Receipt Date: 20050411
  Transmission Date: 20051028
  Serious: No
  Sender: FDA-Public Use
  Company Number: S05-USA-01824-01

PATIENT
  Age: 47 Year
  Sex: Female

DRUGS (5)
  1. CAMPRAL [Suspect]
     Indication: ALCOHOLISM
     Dosage: 666 MG TID PO
     Route: 048
     Dates: start: 20050301
  2. IBUPROFEN [Suspect]
     Indication: PAIN
     Dosage: 500 MG Q4HR PO
     Route: 048
     Dates: end: 20050411
  3. XANAX [Concomitant]
  4. BENADRYL [Concomitant]
  5. STEM HART (ESTROGEN SUPPLEMENT) [Concomitant]

REACTIONS (2)
  - FATIGUE [None]
  - OCULAR ICTERUS [None]
